FAERS Safety Report 10651352 (Version 1)
Quarter: 2014Q4

REPORT INFORMATION
  Report Type: Report from Study
  Country: IL (occurrence: IL)
  Receive Date: 20141215
  Receipt Date: 20141215
  Transmission Date: 20150529
  Serious: No
  Sender: FDA-Public Use
  Company Number: PHHY2014IL157063

PATIENT
  Sex: Male
  Weight: 62.2 kg

DRUGS (2)
  1. TASIGNA [Suspect]
     Active Substance: NILOTINIB
     Indication: CHRONIC MYELOID LEUKAEMIA
     Dosage: UNK
     Route: 048
     Dates: start: 2009, end: 2011
  2. TASIGNA [Suspect]
     Active Substance: NILOTINIB
     Dosage: 200 MG, BID
     Route: 048
     Dates: start: 2013

REACTIONS (4)
  - Cheilitis [Recovering/Resolving]
  - Pyrexia [Recovered/Resolved]
  - Underdose [Unknown]
  - Influenza like illness [Recovered/Resolved]
